FAERS Safety Report 11100187 (Version 1)
Quarter: 2015Q2

REPORT INFORMATION
  Report Type: Report from Study
  Country: DE (occurrence: DE)
  Receive Date: 20150508
  Receipt Date: 20150508
  Transmission Date: 20150821
  Serious: Yes (Hospitalization)
  Sender: FDA-Public Use
  Company Number: DE-TEVA-557480GER

PATIENT
  Age: 7 Decade
  Sex: Female
  Weight: 95 kg

DRUGS (6)
  1. CA-FOLINATE [Suspect]
     Active Substance: LEUCOVORIN CALCIUM
     Indication: GASTRIC CANCER
     Dosage: LAST DOSE PRIOR TO AE: 24-MAR-2015
     Route: 042
     Dates: start: 20150324
  2. LONQUEX [Suspect]
     Active Substance: LIPEGFILGRASTIM
     Indication: NEUTROPENIA
     Dosage: LAST DOSE PRIOR TO AE: 25-MAR-2015
     Dates: start: 20150325
  3. DOCETAXEL. [Suspect]
     Active Substance: DOCETAXEL
     Indication: GASTRIC CANCER
     Dosage: LAST DOSE PRIOR TO AE: 24-MAR-2015
     Route: 042
     Dates: start: 20150324, end: 20150324
  4. FLUOROURACIL. [Suspect]
     Active Substance: FLUOROURACIL
     Indication: GASTRIC CANCER
     Dosage: LAST DOSE PRIOR TO AE: 24-MAR-2015
     Route: 042
     Dates: start: 20150324
  5. OXALIPLATIN. [Suspect]
     Active Substance: OXALIPLATIN
     Indication: GASTRIC CANCER
     Dosage: LAST DOSE PRIOR TO AE: 24-MAR-2015
     Route: 042
     Dates: start: 20150324
  6. BISOPROLOL [Concomitant]
     Active Substance: BISOPROLOL
     Indication: HYPERTENSION
     Route: 048

REACTIONS (1)
  - Subileus [Recovered/Resolved]

NARRATIVE: CASE EVENT DATE: 20150406
